FAERS Safety Report 12296996 (Version 1)
Quarter: 2016Q2

REPORT INFORMATION
  Report Type: Spontaneous
  Country: US (occurrence: US)
  Receive Date: 20160422
  Receipt Date: 20160422
  Transmission Date: 20160815
  Serious: No
  Sender: FDA-Public Use
  Company Number: US-SA-2016SA026281

PATIENT
  Sex: Male

DRUGS (2)
  1. AFREZZA [Suspect]
     Active Substance: INSULIN HUMAN
     Indication: TYPE 1 DIABETES MELLITUS
     Dosage: FREQUENCY: MEALS
     Route: 065
  2. INSULIN [Concomitant]
     Active Substance: INSULIN NOS
     Dates: start: 1994

REACTIONS (1)
  - Cough [Unknown]
